FAERS Safety Report 16780919 (Version 2)
Quarter: 2019Q3

REPORT INFORMATION
  Report Type: Spontaneous
  Country: BR (occurrence: BR)
  Receive Date: 20190906
  Receipt Date: 20190923
  Transmission Date: 20191005
  Serious: Yes (Other)
  Sender: FDA-Public Use
  Company Number: BR-GLAXOSMITHKLINE-BR2019AMR161665

PATIENT
  Age: 49 Year
  Sex: Male

DRUGS (1)
  1. COMBODART [Suspect]
     Active Substance: DUTASTERIDE\TAMSULOSIN
     Indication: PROSTATIC SPECIFIC ANTIGEN INCREASED
     Dosage: 1 DF, 1D(CAPSULE)

REACTIONS (4)
  - Micturition urgency [Not Recovered/Not Resolved]
  - Urinary retention [Not Recovered/Not Resolved]
  - Symptom recurrence [Not Recovered/Not Resolved]
  - Product complaint [Unknown]

NARRATIVE: CASE EVENT DATE: 20190821
